FAERS Safety Report 24831115 (Version 1)
Quarter: 2025Q1

REPORT INFORMATION
  Report Type: Spontaneous
  Country: FR (occurrence: FR)
  Receive Date: 20250110
  Receipt Date: 20250110
  Transmission Date: 20250409
  Serious: Yes (Hospitalization)
  Sender: MERCK
  Company Number: None

PATIENT
  Age: 68 Year
  Sex: Female

DRUGS (1)
  1. KEYTRUDA [Suspect]
     Active Substance: PEMBROLIZUMAB
     Indication: Colorectal adenocarcinoma
     Route: 042
     Dates: start: 20241029, end: 20241029

REACTIONS (1)
  - Enteritis [Recovering/Resolving]

NARRATIVE: CASE EVENT DATE: 20241127
